FAERS Safety Report 21470013 (Version 1)
Quarter: 2022Q4

REPORT INFORMATION
  Report Type: Spontaneous
  Country: US (occurrence: US)
  Receive Date: 20221018
  Receipt Date: 20221018
  Transmission Date: 20230113
  Serious: Yes (Hospitalization, Other)
  Sender: FDA-Public Use
  Company Number: US-ALKEM LABORATORIES LIMITED-US-ALKEM-2022-07534

PATIENT
  Age: 40 Year
  Sex: Male

DRUGS (1)
  1. AZATHIOPRINE [Suspect]
     Active Substance: AZATHIOPRINE
     Indication: Rheumatoid arthritis
     Dosage: 50 MILLIGRAM, DAILY (INCREASED TO TWICE DAILY AFTER 2 WEEKS)
     Route: 065

REACTIONS (2)
  - Aplastic anaemia [Unknown]
  - Myelosuppression [Unknown]
